FAERS Safety Report 5321827-8 (Version None)
Quarter: 2007Q2

REPORT INFORMATION
  Report Type: 
  Country: None (occurrence: None)
  Receive Date: 20070510
  Receipt Date: 20070509
  Transmission Date: 20071010
  Serious: Yes (Death, Other)
  Sender: FDA-Public Use
  Company Number: JP-BRISTOL-MYERS SQUIBB COMPANY-13629894

PATIENT
  Age: 77 Year
  Sex: Female

DRUGS (5)
  1. SINEMET [Suspect]
     Indication: PARKINSON'S DISEASE
     Route: 048
  2. MAGNESIUM OXIDE [Concomitant]
  3. BENZOCAINE [Concomitant]
  4. ETHOPROPAZINE [Concomitant]
  5. ZOPLICONE [Concomitant]

REACTIONS (20)
  - ABNORMAL BEHAVIOUR [None]
  - BUNDLE BRANCH BLOCK LEFT [None]
  - CEREBELLAR ATROPHY [None]
  - CONSTIPATION [None]
  - CONTUSION [None]
  - DEPRESSION [None]
  - DYSKINESIA [None]
  - FALL [None]
  - HYPOREFLEXIA [None]
  - ILEUS PARALYTIC [None]
  - INSOMNIA [None]
  - LISTLESS [None]
  - MUSCLE RIGIDITY [None]
  - PIGMENTATION DISORDER [None]
  - PNEUMONIA [None]
  - RESTLESSNESS [None]
  - SUBDURAL HYGROMA [None]
  - SWELLING FACE [None]
  - TREMOR [None]
  - VOMITING [None]
